FAERS Safety Report 9060355 (Version 1)
Quarter: 2013Q1

REPORT INFORMATION
  Report Type: Spontaneous
  Country: US (occurrence: US)
  Receive Date: 20130212
  Receipt Date: 20130212
  Transmission Date: 20140127
  Serious: No
  Sender: FDA-Public Use
  Company Number: US-009507513-1208USA009407

PATIENT
  Age: 85 Year
  Sex: Female

DRUGS (2)
  1. MIRALAX [Suspect]
     Indication: PRODUCT USED FOR UNKNOWN INDICATION
     Dosage: UNK, QD
     Route: 048
  2. MIRALAX [Suspect]
     Dosage: WUNK, QW
     Route: 048

REACTIONS (3)
  - Fluid retention [Unknown]
  - Incorrect drug administration duration [Unknown]
  - No adverse event [Unknown]
